FAERS Safety Report 8573865-X (Version None)
Quarter: 2012Q3

REPORT INFORMATION
  Report Type: 
  Country: None (occurrence: None)
  Receive Date: 20120806
  Receipt Date: 20120109
  Transmission Date: 20120928
  Serious: No
  Sender: FDA-Public Use
  Company Number: US-GLAXOSMITHKLINE-A0960592A

PATIENT
  Age: 72 Year
  Sex: Male

DRUGS (3)
  1. ZYRTEC [Concomitant]
  2. FLUTICASONE PROPIONATE [Suspect]
     Indication: ASTHMA
     Dosage: 1PUFF SINGLE DOSE
     Route: 055
     Dates: start: 20120108
  3. QVAR 40 [Concomitant]

REACTIONS (2)
  - PRURITUS [None]
  - ERYTHEMA [None]
